FAERS Safety Report 5837860-3 (Version None)
Quarter: 2008Q3

REPORT INFORMATION
  Report Type: 
  Country: None (occurrence: None)
  Receive Date: 20080808
  Receipt Date: 20080303
  Transmission Date: 20090109
  Serious: No
  Sender: FDA-Public Use
  Company Number: A0712934A

PATIENT
  Age: 26 Year
  Sex: Male

DRUGS (2)
  1. PAXIL CR [Suspect]
     Indication: DEPRESSION
     Dosage: 25MG PER DAY
     Route: 048
     Dates: start: 20020101
  2. NO CONCURRENT MEDICATION [Concomitant]

REACTIONS (7)
  - DISTURBANCE IN ATTENTION [None]
  - DYSGEUSIA [None]
  - FLUSHING [None]
  - HYPERHIDROSIS [None]
  - MUSCLE TWITCHING [None]
  - PARAESTHESIA [None]
  - PHARMACEUTICAL PRODUCT COMPLAINT [None]
